FAERS Safety Report 25707572 (Version 1)
Quarter: 2025Q3

REPORT INFORMATION
  Report Type: Report from Study
  Country: US (occurrence: US)
  Receive Date: 20250820
  Receipt Date: 20250820
  Transmission Date: 20251020
  Serious: Yes (Death, Hospitalization, Other)
  Sender: JAZZ
  Company Number: US-JAZZ PHARMACEUTICALS-2025-US-019249

PATIENT
  Sex: Male

DRUGS (1)
  1. LURBINECTEDIN [Suspect]
     Active Substance: LURBINECTEDIN
     Indication: Lung carcinoma cell type unspecified stage 0

REACTIONS (4)
  - Renal failure [Fatal]
  - Failure to thrive [Fatal]
  - Hospitalisation [Unknown]
  - Off label use [Unknown]
